FAERS Safety Report 18640898 (Version 1)
Quarter: 2020Q4

REPORT INFORMATION
  Report Type: Spontaneous
  Country: US (occurrence: US)
  Receive Date: 20201221
  Receipt Date: 20201221
  Transmission Date: 20210114
  Serious: Yes (Death, Hospitalization, Other)
  Sender: FDA-Public Use
  Company Number: US-SA-2020SA361633

PATIENT

DRUGS (1)
  1. DIPHENHYDRAMINE. [Suspect]
     Active Substance: DIPHENHYDRAMINE

REACTIONS (5)
  - Tachycardia [Fatal]
  - Cardiotoxicity [Fatal]
  - Unresponsive to stimuli [Fatal]
  - Generalised tonic-clonic seizure [Fatal]
  - Overdose [Fatal]
